FAERS Safety Report 9493793 (Version 1)
Quarter: 2013Q3

REPORT INFORMATION
  Report Type: Spontaneous
  Country: US (occurrence: US)
  Receive Date: 20130902
  Receipt Date: 20130902
  Transmission Date: 20140515
  Serious: Yes (Disabling, Other)
  Sender: FDA-Public Use
  Company Number: US-MYLANLABS-2013S1018884

PATIENT
  Age: 34 Year
  Sex: Male

DRUGS (2)
  1. TACROLIMUS [Suspect]
     Indication: IMMUNOSUPPRESSANT DRUG THERAPY
     Dosage: 3MG IN MORNING, 2.5MG IN EVENING
     Route: 065
  2. PREDNISONE [Suspect]
     Indication: IMMUNOSUPPRESSANT DRUG THERAPY
     Dosage: 5MG DAILY
     Route: 065

REACTIONS (2)
  - Post transplant distal limb syndrome [Recovered/Resolved]
  - Osteonecrosis [Unknown]
